FAERS Safety Report 4526907-2 (Version None)
Quarter: 2004Q4

REPORT INFORMATION
  Report Type: 
  Country: None (occurrence: None)
  Receive Date: 20041213
  Receipt Date: 20041130
  Transmission Date: 20050328
  Serious: Yes (Hospitalization, Other)
  Sender: FDA-Public Use
  Company Number: SUS1-2004-00826

PATIENT
  Age: 3 Year
  Sex: Female

DRUGS (5)
  1. PENTASA [Suspect]
     Indication: CROHN'S DISEASE
     Dosage: 375 MG, DAILY, ORAL
     Route: 048
     Dates: start: 20040909, end: 20040924
  2. METHYLPREDNISOLONE [Suspect]
     Indication: CROHN'S DISEASE
     Dosage: 21 MG, DAILY, ORAL
     Route: 048
     Dates: start: 20040916
  3. SELENASE(SELENIDE SODIUM) [Suspect]
     Indication: CROHN'S DISEASE
     Dosage: 25 MG, DAILY, ORAL
     Route: 048
     Dates: start: 20040916
  4. ZINKAMIN (ZINC) [Suspect]
     Indication: CROHN'S DISEASE
     Dosage: 15 MG, DAILY, ORAL
     Route: 048
     Dates: start: 20040916
  5. AZULFIDINE [Concomitant]

REACTIONS (3)
  - HAEMATURIA [None]
  - NEPHRITIS [None]
  - PROTEINURIA [None]
